FAERS Safety Report 14605274 (Version 1)
Quarter: 2018Q1

REPORT INFORMATION
  Report Type: Spontaneous
  Country: SE (occurrence: SE)
  Receive Date: 20180306
  Receipt Date: 20180306
  Transmission Date: 20180509
  Serious: Yes (Hospitalization)
  Sender: FDA-Public Use
  Company Number: SE-PFIZER INC-2018090512

PATIENT
  Age: 74 Year
  Sex: Male

DRUGS (11)
  1. APRESOLIN [Concomitant]
     Active Substance: HYDRALAZINE HYDROCHLORIDE
  2. IMODIUM [Concomitant]
     Active Substance: LOPERAMIDE HYDROCHLORIDE
     Dosage: 1 DF, AS NEEDED
  3. ENTRESTO [Interacting]
     Active Substance: SACUBITRIL\VALSARTAN
     Dosage: 1 DF, 2X/DAY
     Dates: start: 20170626, end: 20171024
  4. SELOKEN /00376902/ [Concomitant]
     Active Substance: METOPROLOL TARTRATE
  5. IMDUR [Concomitant]
     Active Substance: ISOSORBIDE MONONITRATE
  6. CORDARONE [Concomitant]
     Active Substance: AMIODARONE HYDROCHLORIDE
  7. ELIQUIS [Concomitant]
     Active Substance: APIXABAN
  8. SPIRONOLACTONE. [Suspect]
     Active Substance: SPIRONOLACTONE
     Dosage: 25 MG, DAILY
     Dates: start: 20170101, end: 20171024
  9. ATORVASTATIN [Concomitant]
     Active Substance: ATORVASTATIN
  10. FURIX [Concomitant]
     Active Substance: FUROSEMIDE
  11. ALVEDON [Concomitant]
     Active Substance: ACETAMINOPHEN

REACTIONS (3)
  - Drug interaction [Recovered/Resolved]
  - Hyperkalaemia [Recovered/Resolved]
  - Renal impairment [Recovered/Resolved]

NARRATIVE: CASE EVENT DATE: 20171024
